FAERS Safety Report 5585208-4 (Version None)
Quarter: 2008Q1

REPORT INFORMATION
  Report Type: 
  Country: None (occurrence: None)
  Receive Date: 20080109
  Receipt Date: 20080107
  Transmission Date: 20080703
  Serious: Yes (Death)
  Sender: FDA-Public Use
  Company Number: PHNR2007AU02058

PATIENT
  Age: 26 Year
  Sex: Male

DRUGS (3)
  1. CLOZARIL [Suspect]
     Indication: SCHIZOPHRENIA
     Dosage: 12.5 MG - 225 MG DAILY
     Route: 048
     Dates: start: 20061004, end: 20070922
  2. MIRTAZAPINE [Suspect]
     Dosage: 45MG NOCTE
  3. RANITIDINE [Suspect]
     Dosage: 150 MG, BID

REACTIONS (3)
  - COMPLETED SUICIDE [None]
  - PSYCHOTIC DISORDER [None]
  - TREATMENT NONCOMPLIANCE [None]
